FAERS Safety Report 9433175 (Version 4)
Quarter: 2015Q4

REPORT INFORMATION
  Report Type: Spontaneous
  Country: US (occurrence: US)
  Receive Date: 20130731
  Receipt Date: 20151106
  Transmission Date: 20160305
  Serious: Yes (Hospitalization, Other)
  Sender: FDA-Public Use
  Company Number: US-GLAXOSMITHKLINE-A1035488A

PATIENT
  Age: 69 Year
  Sex: Female

DRUGS (9)
  1. ADVAIR DISKUS [Suspect]
     Active Substance: FLUTICASONE PROPIONATE\SALMETEROL XINAFOATE
     Indication: ASTHMA
     Dosage: UNK, BID
     Route: 055
     Dates: start: 2003
  2. SIMETHICONE (DIMETHICONE) [Concomitant]
     Active Substance: DIMETHICONE
  3. VENTOLIN HFA [Suspect]
     Active Substance: ALBUTEROL SULFATE
     Indication: ASTHMA
     Dosage: 90 MCG
     Route: 055
     Dates: start: 2003
  4. VENTOLIN HFA [Suspect]
     Active Substance: ALBUTEROL SULFATE
     Indication: CHRONIC OBSTRUCTIVE PULMONARY DISEASE
     Dosage: UNK
     Route: 055
  5. ADVAIR DISKUS [Suspect]
     Active Substance: FLUTICASONE PROPIONATE\SALMETEROL XINAFOATE
     Indication: CHRONIC OBSTRUCTIVE PULMONARY DISEASE
  6. HYDROCODONE [Concomitant]
     Active Substance: HYDROCODONE
  7. VITAMIN B12 [Concomitant]
     Active Substance: CYANOCOBALAMIN
  8. OXYCODONE [Concomitant]
     Active Substance: OXYCODONE
  9. CLONAZEPAM. [Concomitant]
     Active Substance: CLONAZEPAM

REACTIONS (12)
  - Ill-defined disorder [Unknown]
  - Colon cancer [Unknown]
  - Neoplasm malignant [Unknown]
  - Sinusitis [Not Recovered/Not Resolved]
  - Colon operation [Unknown]
  - Nausea [Unknown]
  - Ovarian operation [Unknown]
  - Malaise [Unknown]
  - Ovarian cancer [Unknown]
  - Immune system disorder [Unknown]
  - Metastasis [Unknown]
  - Tumour excision [Unknown]

NARRATIVE: CASE EVENT DATE: 201501
